FAERS Safety Report 24406461 (Version 1)
Quarter: 2024Q4

REPORT INFORMATION
  Report Type: Spontaneous
  Country: GB (occurrence: GB)
  Receive Date: 20241007
  Receipt Date: 20241007
  Transmission Date: 20250114
  Serious: Yes (Disabling, Other)
  Sender: TEVA
  Company Number: GB-MHRA-WEBCOVID-202409260341434290-LVCGS

PATIENT

DRUGS (4)
  1. CLARITHROMYCIN [Suspect]
     Active Substance: CLARITHROMYCIN
     Dosage: AMOXYCILLIN AND CLARITHROMYCIN AND LANSOPRAZOLE
     Route: 065
     Dates: start: 20240907, end: 20240908
  2. CITALOPRAM [Concomitant]
     Active Substance: CITALOPRAM
     Indication: Anxiety
  3. LANSOPRAZOLE [Suspect]
     Active Substance: LANSOPRAZOLE
     Dosage: AMOXYCILLIN AND CLARITHROMYCIN AND LANSOPRAZOLE
     Route: 065
     Dates: start: 20240907, end: 20240908
  4. AMOXICILLIN [Suspect]
     Active Substance: AMOXICILLIN
     Indication: Peptic ulcer
     Dosage: AMOXYCILLIN AND CLARITHROMYCIN AND LANSOPRAZOLE
     Route: 065
     Dates: start: 20240907, end: 20240908

REACTIONS (3)
  - Migraine [Recovered/Resolved]
  - Meningitis [Unknown]
  - Vomiting [Unknown]

NARRATIVE: CASE EVENT DATE: 20240908
